FAERS Safety Report 9398730 (Version 2)
Quarter: 2013Q3

REPORT INFORMATION
  Report Type: Spontaneous
  Country: US (occurrence: US)
  Receive Date: 20130712
  Receipt Date: 20130828
  Transmission Date: 20140515
  Serious: No
  Sender: FDA-Public Use
  Company Number: US-009507513-1307USA006103

PATIENT
  Age: 30 Year
  Sex: Male
  Weight: 61.22 kg

DRUGS (2)
  1. ISENTRESS [Suspect]
     Indication: HIV INFECTION
     Dosage: 400 MG, BID
     Route: 048
     Dates: start: 20120720
  2. TRUVADA [Concomitant]
     Dosage: UNK
     Dates: start: 20120720

REACTIONS (2)
  - Subcutaneous abscess [Unknown]
  - Rash [Unknown]
